FAERS Safety Report 18575249 (Version 1)
Quarter: 2020Q4

REPORT INFORMATION
  Report Type: Report from Study
  Country: IT (occurrence: IT)
  Receive Date: 20201203
  Receipt Date: 20201203
  Transmission Date: 20210114
  Serious: Yes (Hospitalization)
  Sender: FDA-Public Use
  Company Number: IT-MYLANLABS-2020M1097861

PATIENT
  Age: 18 Year
  Sex: Female

DRUGS (8)
  1. FLUOXETINE [Concomitant]
     Active Substance: FLUOXETINE HYDROCHLORIDE
     Dosage: UNK
  2. RESILIENT [Concomitant]
     Active Substance: LITHIUM SULFATE
  3. PANTOPRAZOLO TEVA [Suspect]
     Active Substance: PANTOPRAZOLE SODIUM
     Indication: GASTRITIS
     Dosage: 140 MILLIGRAM, TOTAL
     Route: 048
     Dates: start: 20200907, end: 20200907
  4. BISOPROLOLO SANDOZ [Suspect]
     Active Substance: BISOPROLOL FUMARATE
     Indication: ARRHYTHMIA
     Dosage: 27.5 MILLIGRAM, TOTAL
     Route: 048
     Dates: start: 20200907, end: 20200907
  5. ARIPIPRAZOLE. [Concomitant]
     Active Substance: ARIPIPRAZOLE
     Dosage: UNK
  6. MELATONIN [Concomitant]
     Active Substance: MELATONIN
     Dosage: UNK
     Route: 048
  7. PARACETAMOL [Suspect]
     Active Substance: ACETAMINOPHEN
     Indication: PAIN
     Dosage: 10000 MILLIGRAM, TOTAL
     Route: 048
     Dates: start: 20200907, end: 20200907
  8. MOGADON [Concomitant]
     Active Substance: NITRAZEPAM
     Dosage: UNK

REACTIONS (5)
  - Hypotension [Recovering/Resolving]
  - Bradycardia [Recovering/Resolving]
  - Overdose [Recovering/Resolving]
  - Intentional self-injury [Recovering/Resolving]
  - Drug abuse [Recovering/Resolving]

NARRATIVE: CASE EVENT DATE: 20200907
